FAERS Safety Report 5408248-4 (Version None)
Quarter: 2007Q3

REPORT INFORMATION
  Report Type: 
  Country: None (occurrence: None)
  Receive Date: 20070806
  Receipt Date: 20070806
  Transmission Date: 20080115
  Serious: Yes (Hospitalization)
  Sender: FDA-Public Use
  Company Number: None

PATIENT
  Age: 84 Year
  Sex: Male

DRUGS (1)
  1. FUROSEMIDE [Suspect]
     Indication: OEDEMA PERIPHERAL
     Dosage: 20MG EVERY DAY PO
     Route: 048
     Dates: start: 19961029, end: 20070411

REACTIONS (2)
  - DEHYDRATION [None]
  - RENAL IMPAIRMENT [None]
